FAERS Safety Report 7744766-1 (Version None)
Quarter: 2011Q3

REPORT INFORMATION
  Report Type: 
  Country: None (occurrence: None)
  Receive Date: 20110912
  Receipt Date: 20110912
  Transmission Date: 20111222
  Serious: Yes (Hospitalization)
  Sender: FDA-Public Use
  Company Number: None

PATIENT
  Age: 63 Year
  Sex: Female
  Weight: 54.431 kg

DRUGS (2)
  1. CYMBALTA [Suspect]
     Indication: DEPRESSION
     Dosage: 2 PILLS
     Route: 048
     Dates: start: 20110811, end: 20110823
  2. CYMBALTA [Suspect]
     Indication: PAIN
     Dosage: 2 PILLS
     Route: 048
     Dates: start: 20110811, end: 20110823

REACTIONS (7)
  - DIPLOPIA [None]
  - NAUSEA [None]
  - HYPERHIDROSIS [None]
  - CHEST DISCOMFORT [None]
  - DYSPNOEA [None]
  - DIZZINESS [None]
  - PRESYNCOPE [None]
